FAERS Safety Report 20181850 (Version 1)
Quarter: 2021Q4

REPORT INFORMATION
  Report Type: Spontaneous
  Country: US (occurrence: US)
  Receive Date: 20211214
  Receipt Date: 20211214
  Transmission Date: 20220304
  Serious: No
  Sender: FDA-Public Use
  Company Number: US-BAYER-2021A264751

PATIENT
  Age: 42 Year
  Sex: Female

DRUGS (1)
  1. KOGENATE FS [Suspect]
     Active Substance: ANTIHEMOPHILIC FACTOR, HUMAN RECOMBINANT
     Indication: Haemorrhage
     Dosage: 2140 U DAILY PRN BLEEDING PER PHYSICIAN DIRECTION UP TO 6 DAYS
     Route: 042

REACTIONS (2)
  - Contusion [None]
  - Limb injury [None]

NARRATIVE: CASE EVENT DATE: 20211201
